FAERS Safety Report 9891746 (Version 2)
Quarter: 2014Q2

REPORT INFORMATION
  Report Type: Spontaneous
  Country: US (occurrence: US)
  Receive Date: 20140212
  Receipt Date: 20140610
  Transmission Date: 20141212
  Serious: No
  Sender: FDA-Public Use
  Company Number: US-009507513-1402USA004875

PATIENT
  Sex: Female
  Weight: 72.56 kg

DRUGS (2)
  1. CLARITIN [Suspect]
     Indication: NASOPHARYNGITIS
     Dosage: 10 MG, PRN
     Route: 048
  2. CLARITIN [Suspect]
     Indication: RHINORRHOEA

REACTIONS (2)
  - Off label use [Unknown]
  - Product physical issue [Unknown]
